FAERS Safety Report 25989949 (Version 1)
Quarter: 2025Q4

REPORT INFORMATION
  Report Type: Spontaneous
  Country: US (occurrence: None)
  Receive Date: 20251101
  Receipt Date: 20251101
  Transmission Date: 20260118
  Serious: Yes (Other)
  Sender: FDA-CTU
  Company Number: None

PATIENT
  Age: 35 Year
  Sex: Female
  Weight: 69.75 kg

DRUGS (2)
  1. FERRLECIT [Suspect]
     Active Substance: SODIUM FERRIC GLUCONATE COMPLEX
     Indication: Iron deficiency anaemia
     Route: 042
     Dates: start: 20251031, end: 20251031
  2. FERRLECIT [Suspect]
     Active Substance: SODIUM FERRIC GLUCONATE COMPLEX
     Indication: Malabsorption

REACTIONS (4)
  - Oedema peripheral [None]
  - Oedema peripheral [None]
  - Blood pressure increased [None]
  - Tachycardia [None]

NARRATIVE: CASE EVENT DATE: 20251031
